FAERS Safety Report 5000862-3 (Version None)
Quarter: 2006Q2

REPORT INFORMATION
  Report Type: 
  Country: None (occurrence: None)
  Receive Date: 20060512
  Receipt Date: 20060306
  Transmission Date: 20061013
  Serious: Yes (Hospitalization)
  Sender: FDA-Public Use
  Company Number: US-MERCK-0603USA01019

PATIENT
  Age: 82 Year
  Sex: Female
  Weight: 73 kg

DRUGS (4)
  1. VIOXX [Suspect]
     Indication: OSTEOARTHRITIS
     Route: 048
     Dates: start: 20011227, end: 20041005
  2. ALBUTEROL [Concomitant]
     Route: 065
  3. DOXYCYCLINE [Concomitant]
     Route: 065
  4. FLOVENT [Concomitant]
     Route: 065

REACTIONS (11)
  - ASPIRATION [None]
  - ATRIAL FIBRILLATION [None]
  - BLISTER [None]
  - CARDIAC DISORDER [None]
  - CEREBROVASCULAR ACCIDENT [None]
  - DEHYDRATION [None]
  - DYSPEPSIA [None]
  - ELECTROCARDIOGRAM T WAVE INVERSION [None]
  - GLUCOSE TOLERANCE IMPAIRED [None]
  - MENTAL STATUS CHANGES [None]
  - VASCULAR DEMENTIA [None]
